FAERS Safety Report 11677833 (Version 1)
Quarter: 2015Q4

REPORT INFORMATION
  Report Type: Spontaneous
  Country: US (occurrence: US)
  Receive Date: 20151028
  Receipt Date: 20151028
  Transmission Date: 20160304
  Serious: Yes (Death, Hospitalization)
  Sender: FDA-Public Use
  Company Number: US-TEVA-603520USA

PATIENT
  Age: 53 Year
  Sex: Male
  Weight: 76 kg

DRUGS (3)
  1. GEMCITABINE [Suspect]
     Active Substance: GEMCITABINE\GEMCITABINE HYDROCHLORIDE
     Indication: PANCREATIC CARCINOMA
     Dosage: DAY 1, 8, 15
     Route: 042
     Dates: start: 20140804, end: 20150427
  2. ENZALUTAMIDE [Suspect]
     Active Substance: ENZALUTAMIDE
     Indication: PANCREATIC CARCINOMA
     Dosage: 160 MILLIGRAM DAILY;
     Route: 048
     Dates: start: 20140804, end: 20150427
  3. NAB-PACLITAXEL [Suspect]
     Active Substance: PACLITAXEL
     Indication: PANCREATIC CARCINOMA
     Dosage: 2.6786 MG/M2 DAILY; DAY 1, 8, 15
     Route: 042
     Dates: start: 20140804, end: 20150427

REACTIONS (2)
  - Nausea [Recovered/Resolved]
  - Adenocarcinoma [Fatal]

NARRATIVE: CASE EVENT DATE: 20150428
